FAERS Safety Report 9851184 (Version 1)
Quarter: 2014Q1

REPORT INFORMATION
  Report Type: Spontaneous
  Country: US (occurrence: US)
  Receive Date: 20140128
  Receipt Date: 20140128
  Transmission Date: 20141002
  Serious: No
  Sender: FDA-Public Use
  Company Number: US-SA-2013SA104828

PATIENT
  Age: 85 Year
  Sex: Female

DRUGS (1)
  1. LASIX [Suspect]
     Indication: OEDEMA
     Route: 048

REACTIONS (2)
  - Arthralgia [Unknown]
  - Dizziness [Unknown]
